FAERS Safety Report 4766424-8 (Version None)
Quarter: 2005Q3

REPORT INFORMATION
  Report Type: 
  Country: None (occurrence: None)
  Receive Date: 20050912
  Receipt Date: 20050831
  Transmission Date: 20060218
  Serious: Yes (Hospitalization)
  Sender: FDA-Public Use
  Company Number: FR-BRISTOL-MYERS SQUIBB COMPANY-13097969

PATIENT
  Age: 23 Year
  Sex: Male

DRUGS (2)
  1. ABILIFY [Suspect]
     Indication: DELUSIONAL DISORDER, PERSECUTORY TYPE
     Route: 048
  2. ZOLOFT [Suspect]
     Route: 048

REACTIONS (4)
  - EXOPHTHALMOS [None]
  - MOOD SWINGS [None]
  - NERVOUSNESS [None]
  - WEIGHT DECREASED [None]
